FAERS Safety Report 5706539-0 (Version None)
Quarter: 2008Q2

REPORT INFORMATION
  Report Type: 
  Country: None (occurrence: None)
  Receive Date: 20080415
  Receipt Date: 20080407
  Transmission Date: 20081010
  Serious: Yes (Disabling)
  Sender: FDA-Public Use
  Company Number: SE-ALLERGAN-0804067US

PATIENT
  Age: 28 Year
  Sex: Male

DRUGS (3)
  1. BOTOX [Suspect]
     Indication: URINARY TRACT DISORDER
     Dosage: 300 UNITS, SINGLE
     Dates: start: 20051101, end: 20051101
  2. ADALAT [Concomitant]
     Indication: PROPHYLAXIS
     Dates: start: 20051101, end: 20051101
  3. OXYBUTYNIN CHLORIDE [Concomitant]

REACTIONS (1)
  - MUSCULAR WEAKNESS [None]
